FAERS Safety Report 5660961-X (Version None)
Quarter: 2008Q1

REPORT INFORMATION
  Report Type: 
  Country: None (occurrence: None)
  Receive Date: 20080311
  Receipt Date: 20080303
  Transmission Date: 20080703
  Serious: Yes (Hospitalization)
  Sender: FDA-Public Use
  Company Number: US-WYE-H02903608

PATIENT
  Sex: Female

DRUGS (3)
  1. PREMARIN [Suspect]
     Dosage: NOT PROVIDED
     Route: 048
  2. PREMARIN [Suspect]
     Indication: VULVOVAGINAL DRYNESS
     Dosage: 1/2 TUBE TWICE A WEEK
     Route: 067
     Dates: start: 20050101, end: 20070401
  3. PREMARIN [Suspect]
     Indication: VAGINAL HAEMORRHAGE

REACTIONS (3)
  - INAPPROPRIATE SCHEDULE OF DRUG ADMINISTRATION [None]
  - INTENTIONAL OVERDOSE [None]
  - LARGE INTESTINAL HAEMORRHAGE [None]
